FAERS Safety Report 8105882-8 (Version None)
Quarter: 2012Q1

REPORT INFORMATION
  Report Type: 
  Country: None (occurrence: None)
  Receive Date: 20120202
  Receipt Date: 20120125
  Transmission Date: 20120608
  Serious: No
  Sender: FDA-Public Use
  Company Number: US-BIOGENIDEC-2011BI005089

PATIENT
  Sex: Female

DRUGS (2)
  1. TYSABRI [Suspect]
     Indication: MULTIPLE SCLEROSIS
     Route: 042
     Dates: start: 20100520, end: 20120101
  2. AVONEX [Concomitant]
     Indication: MULTIPLE SCLEROSIS
     Route: 030
     Dates: start: 20120110

REACTIONS (6)
  - MUSCULAR WEAKNESS [None]
  - BALANCE DISORDER [None]
  - DYSTONIA [None]
  - MUSCLE SPASMS [None]
  - GAIT DISTURBANCE [None]
  - HYPOAESTHESIA [None]
